FAERS Safety Report 8569860 (Version 5)
Quarter: 2013Q1

REPORT INFORMATION
  Report Type: Spontaneous
  Country: US (occurrence: US)
  Receive Date: 20120518
  Receipt Date: 20130117
  Transmission Date: 20140127
  Serious: No
  Sender: FDA-Public Use
  Company Number: US-ASTRAZENECA-2012SE24210

PATIENT
  Age: 60 Year
  Sex: Female

DRUGS (3)
  1. SYMBICORT PMDI [Suspect]
     Dosage: 80/4.5 MCG, UNKNOWN FREQUENCY
     Route: 055
  2. SYMBICORT PMDI [Suspect]
     Dosage: 160/4.5 MCG, UNKNOWN FREQUENCY
     Route: 055
  3. SYMBICORT PMDI [Suspect]
     Dosage: 80/4.5 MCG, DOUBELING UP, FREQUENCY UNKNOWN
     Route: 055

REACTIONS (9)
  - Dyspnoea [Unknown]
  - Multiple allergies [Unknown]
  - Malaise [Unknown]
  - Viral infection [Recovered/Resolved]
  - Seasonal allergy [Unknown]
  - Headache [Unknown]
  - Drug dose omission [Unknown]
  - Drug prescribing error [Unknown]
  - Drug ineffective [Unknown]
